FAERS Safety Report 7870472 (Version 6)
Quarter: 2013Q2

REPORT INFORMATION
  Report Type: Spontaneous
  Country: US (occurrence: US)
  Receive Date: 20110324
  Receipt Date: 20130430
  Transmission Date: 20140414
  Serious: No
  Sender: FDA-Public Use
  Company Number: US-ASTRAZENECA-2011SE14961

PATIENT
  Age: 85 Year
  Sex: Female

DRUGS (2)
  1. NEXIUM [Suspect]
     Route: 048
  2. UNSPECIFIED [Concomitant]

REACTIONS (10)
  - Memory impairment [Unknown]
  - Hypovitaminosis [Unknown]
  - Gastric polyps [Unknown]
  - Gastrointestinal ulcer [Unknown]
  - Kidney infection [Unknown]
  - Hearing impaired [Unknown]
  - Sleep disorder due to general medical condition, insomnia type [Unknown]
  - Abdominal pain upper [Unknown]
  - Malaise [Unknown]
  - Abdominal discomfort [Unknown]
